FAERS Safety Report 9937324 (Version 1)
Quarter: 2014Q1

REPORT INFORMATION
  Report Type: Spontaneous
  Country: US (occurrence: US)
  Receive Date: 20140302
  Receipt Date: 20140302
  Transmission Date: 20141002
  Serious: No
  Sender: FDA-Public Use
  Company Number: US-009507513-1402USA013020

PATIENT
  Age: 23 Year
  Sex: Female
  Weight: 78.91 kg

DRUGS (1)
  1. NUVARING [Suspect]
     Indication: CONTRACEPTION
     Dosage: 1 RING FOR 3 WEEKS FOLLOWED BY WEEK FREE BREAK
     Route: 067
     Dates: start: 201310

REACTIONS (3)
  - Menstruation delayed [Unknown]
  - Unintended pregnancy [Unknown]
  - Inappropriate schedule of drug administration [Unknown]
